FAERS Safety Report 8369046-5 (Version None)
Quarter: 2012Q2

REPORT INFORMATION
  Report Type: 
  Country: None (occurrence: None)
  Receive Date: 20120516
  Receipt Date: 20120516
  Transmission Date: 20120825
  Serious: Yes (Hospitalization)
  Sender: FDA-Public Use
  Company Number: None

PATIENT
  Age: 61 Year
  Sex: Female
  Weight: 74.3899 kg

DRUGS (10)
  1. MULTI-VITAMINS [Concomitant]
  2. EFFIENT [Suspect]
     Indication: CORONARY ARTERIAL STENT INSERTION
     Dosage: 10MG DAILY PO
     Route: 048
     Dates: start: 20111006, end: 20120515
  3. EFFIENT [Suspect]
     Indication: MYOCARDIAL INFARCTION
     Dosage: 10MG DAILY PO
     Route: 048
     Dates: start: 20111006, end: 20120515
  4. ATORVASTATIN CALCIUM [Concomitant]
  5. CARVEDILOL [Concomitant]
  6. ASPIRIN [Suspect]
     Indication: MYOCARDIAL INFARCTION
     Dosage: 325MG DAILY PO
     Route: 048
     Dates: start: 20111006, end: 20120515
  7. ASPIRIN [Suspect]
     Indication: CORONARY ARTERIAL STENT INSERTION
     Dosage: 325MG DAILY PO
     Route: 048
     Dates: start: 20111006, end: 20120515
  8. VENLAFAXINE [Concomitant]
  9. MELOXICAM [Concomitant]
  10. CALCIUM +D [Concomitant]

REACTIONS (3)
  - PALLOR [None]
  - RECTAL HAEMORRHAGE [None]
  - HYPOTENSION [None]
